FAERS Safety Report 6923920-2 (Version None)
Quarter: 2010Q3

REPORT INFORMATION
  Report Type: 
  Country: None (occurrence: None)
  Receive Date: 20100813
  Receipt Date: 20100804
  Transmission Date: 20110219
  Serious: Yes (Other)
  Sender: FDA-Public Use
  Company Number: BR-ELI_LILLY_AND_COMPANY-BR201008001610

PATIENT
  Sex: Female

DRUGS (4)
  1. FORTEO [Suspect]
     Indication: OSTEOPOROSIS
     Dosage: UNK, DAILY (1/D)
     Route: 065
     Dates: end: 20100201
  2. HIDROCLOROTIAZIDA [Concomitant]
     Indication: HYPERTENSION
     Dosage: 25 MG, DAILY (1/D)
     Route: 048
  3. OMEPRAZOLE [Concomitant]
     Indication: GASTROINTESTINAL DISORDER
     Dosage: 40 MG, EACH MORNING
     Route: 048
  4. EPAREMA                            /01513701/ [Concomitant]
     Dosage: UNK, UNKNOWN
     Route: 065

REACTIONS (9)
  - BODY DYSMORPHIC DISORDER [None]
  - BONE PAIN [None]
  - DRUG INEFFECTIVE [None]
  - DYSSTASIA [None]
  - FAT TISSUE INCREASED [None]
  - GAIT DISTURBANCE [None]
  - HEARING IMPAIRED [None]
  - SENSORY DISTURBANCE [None]
  - WEIGHT INCREASED [None]
